FAERS Safety Report 16994275 (Version 1)
Quarter: 2019Q4

REPORT INFORMATION
  Report Type: Report from Study
  Country: GB (occurrence: GB)
  Receive Date: 20191105
  Receipt Date: 20191105
  Transmission Date: 20200122
  Serious: Yes (Other)
  Sender: FDA-Public Use
  Company Number: NVSC2019GB023236

PATIENT
  Sex: Female

DRUGS (1)
  1. HYRIMOZ [Suspect]
     Active Substance: ADALIMUMAB-ADAZ
     Indication: PSORIATIC ARTHROPATHY
     Dosage: 0.8 ML, Q2W
     Route: 065
     Dates: start: 20190919

REACTIONS (5)
  - Eye irritation [Unknown]
  - Frequent bowel movements [Unknown]
  - Diabetes mellitus [Unknown]
  - Pollakiuria [Unknown]
  - Psoriatic arthropathy [Unknown]
